FAERS Safety Report 21341234 (Version 1)
Quarter: 2022Q3

REPORT INFORMATION
  Report Type: Spontaneous
  Country: FR (occurrence: FR)
  Receive Date: 20220916
  Receipt Date: 20220916
  Transmission Date: 20221027
  Serious: Yes (Hospitalization, Other)
  Sender: FDA-Public Use
  Company Number: FR-ALKEM LABORATORIES LIMITED-CN-ALKEM-2022-09675

PATIENT
  Age: 51 Year
  Sex: Male

DRUGS (1)
  1. COLCHICINE [Suspect]
     Active Substance: COLCHICINE
     Indication: Product used for unknown indication
     Dosage: 17 MILLIGRAM, (SERUM COLCHICINE LEVEL- 9.7 NG/ML)
     Route: 048

REACTIONS (4)
  - Acute kidney injury [Recovering/Resolving]
  - Acute respiratory failure [Recovering/Resolving]
  - Suicide attempt [Recovering/Resolving]
  - Myocardial injury [Recovering/Resolving]
